FAERS Safety Report 9536858 (Version 3)
Quarter: 2013Q4

REPORT INFORMATION
  Report Type: Spontaneous
  Country: US (occurrence: US)
  Receive Date: 20130919
  Receipt Date: 20131010
  Transmission Date: 20140711
  Serious: Yes (Other)
  Sender: FDA-Public Use
  Company Number: US-PFIZER INC-2013268960

PATIENT
  Sex: Male
  Weight: 101 kg

DRUGS (4)
  1. CELEBREX [Suspect]
     Indication: ARTHRALGIA
     Dosage: 200 MG DAILY
     Dates: end: 2013
  2. CELEBREX [Suspect]
     Indication: ARTHROPATHY
  3. CELEBREX [Suspect]
     Indication: PAIN
  4. ADVIL [Concomitant]
     Dosage: UNK

REACTIONS (2)
  - Arthropathy [Unknown]
  - Arthralgia [Unknown]
